FAERS Safety Report 4745685-5 (Version None)
Quarter: 2005Q3

REPORT INFORMATION
  Report Type: 
  Country: None (occurrence: None)
  Receive Date: 20050816
  Receipt Date: 20050720
  Transmission Date: 20060218
  Serious: Yes (Life-Threatening)
  Sender: FDA-Public Use
  Company Number: JP-BOEHRINGER INGELHEIM PHARMACEUTICALS, INC.-2005-BP-12357NB

PATIENT
  Sex: Male
  Weight: 51.8 kg

DRUGS (11)
  1. MOBIC [Suspect]
     Indication: BACK PAIN
     Route: 048
     Dates: start: 20050621, end: 20050627
  2. MUCOSAL [Concomitant]
     Indication: CHRONIC OBSTRUCTIVE PULMONARY DISEASE
     Route: 048
     Dates: start: 20030306
  3. DEPROMEL [Concomitant]
     Indication: DEPRESSION
     Route: 048
     Dates: start: 20050524
  4. SPIRIVA [Concomitant]
     Indication: CHRONIC OBSTRUCTIVE PULMONARY DISEASE
     Route: 055
     Dates: start: 20050316
  5. FLUTIDE [Concomitant]
     Indication: ASTHMA
     Route: 055
     Dates: start: 20030306
  6. EURODIN [Concomitant]
     Indication: INSOMNIA
     Route: 048
     Dates: start: 20050603
  7. PROTECADIN [Concomitant]
     Indication: GASTRITIS
     Route: 048
     Dates: start: 20040204
  8. FK [Concomitant]
     Indication: GASTRITIS
     Route: 048
     Dates: start: 20040204
  9. DOGMATYL [Concomitant]
     Indication: DEPRESSION
     Route: 048
     Dates: start: 20040311
  10. ONON [Concomitant]
     Indication: ASTHMA
     Route: 048
     Dates: start: 20030306
  11. THEOLONG [Concomitant]
     Indication: ASTHMA
     Route: 048
     Dates: start: 20030306

REACTIONS (3)
  - ASTHMA [None]
  - BRONCHITIS ACUTE [None]
  - GENERALISED OEDEMA [None]
